FAERS Safety Report 6972536-0 (Version None)
Quarter: 2010Q3

REPORT INFORMATION
  Report Type: 
  Country: None (occurrence: None)
  Receive Date: 20100824
  Receipt Date: 20100524
  Transmission Date: 20110219
  Serious: No
  Sender: FDA-Public Use
  Company Number: 309507

PATIENT
  Age: 56 Year
  Sex: Female

DRUGS (3)
  1. VICTOZA [Suspect]
     Indication: TYPE 2 DIABETES MELLITUS
     Dosage: 0.6 MG, QD, SUBCUTANEOUS;1.2 MG, QD, SUBCUTANEOUS;1.8 MG, QD, SUBCUTANEOUS;1.2 MG, QD, SUBCUTANEOS
     Route: 058
     Dates: start: 20100317
  2. VICTOZA [Suspect]
     Indication: TYPE 2 DIABETES MELLITUS
     Dosage: 0.6 MG, QD, SUBCUTANEOUS;1.2 MG, QD, SUBCUTANEOUS;1.8 MG, QD, SUBCUTANEOUS;1.2 MG, QD, SUBCUTANEOS
     Route: 058
     Dates: start: 20100420
  3. VICTOZA [Suspect]
     Indication: TYPE 2 DIABETES MELLITUS
     Dosage: 0.6 MG, QD, SUBCUTANEOUS;1.2 MG, QD, SUBCUTANEOUS;1.8 MG, QD, SUBCUTANEOUS;1.2 MG, QD, SUBCUTANEOS
     Route: 058
     Dates: start: 20100504

REACTIONS (2)
  - ALOPECIA [None]
  - SEASONAL ALLERGY [None]
